FAERS Safety Report 9426152 (Version 3)
Quarter: 2013Q4

REPORT INFORMATION
  Report Type: Spontaneous
  Country: US (occurrence: US)
  Receive Date: 20130730
  Receipt Date: 20131010
  Transmission Date: 20140711
  Serious: Yes (Other)
  Sender: FDA-Public Use
  Company Number: US-BIOGENIDEC-2013BI069262

PATIENT
  Age: 60 Year
  Sex: Female

DRUGS (2)
  1. TYSABRI [Suspect]
     Indication: MULTIPLE SCLEROSIS
     Route: 042
     Dates: start: 20120416, end: 20130724
  2. AVONEX [Concomitant]
     Indication: MULTIPLE SCLEROSIS
     Route: 030
     Dates: start: 20040502

REACTIONS (3)
  - Osteomyelitis [Not Recovered/Not Resolved]
  - Decubitus ulcer [Not Recovered/Not Resolved]
  - Fall [Recovered/Resolved]
